FAERS Safety Report 8916769 (Version 3)
Quarter: 2013Q1

REPORT INFORMATION
  Report Type: Spontaneous
  Country: US (occurrence: US)
  Receive Date: 20121120
  Receipt Date: 20130109
  Transmission Date: 20140127
  Serious: No
  Sender: FDA-Public Use
  Company Number: US-PFIZER INC-2012286813

PATIENT
  Age: 47 Year
  Sex: Female

DRUGS (1)
  1. PREMPRO [Suspect]
     Indication: HORMONE REPLACEMENT THERAPY
     Dosage: 0.45MG/1.5MG, DAILY
     Route: 048
     Dates: start: 20120203

REACTIONS (8)
  - Headache [Unknown]
  - Metrorrhagia [Unknown]
  - Breakthrough pain [Unknown]
  - Hot flush [Unknown]
  - Night sweats [Unknown]
  - Insomnia [Unknown]
  - Fluid retention [Unknown]
  - Breast pain [Unknown]
